FAERS Safety Report 6046368-4 (Version None)
Quarter: 2009Q1

REPORT INFORMATION
  Report Type: 
  Country: None (occurrence: None)
  Receive Date: 20090122
  Receipt Date: 20090115
  Transmission Date: 20090719
  Serious: Yes (Hospitalization)
  Sender: FDA-Public Use
  Company Number: US-BIOGENIDEC-2005BI008919

PATIENT
  Age: 50 Year
  Sex: Female

DRUGS (4)
  1. AVONEX [Suspect]
     Indication: MULTIPLE SCLEROSIS
     Route: 030
     Dates: start: 20030828, end: 20080101
  2. AVONEX [Suspect]
     Route: 030
     Dates: start: 20081001
  3. AVONEX [Suspect]
     Route: 030
     Dates: start: 19961008, end: 20030821
  4. STEROID (NOS) [Concomitant]
     Indication: MULTIPLE SCLEROSIS

REACTIONS (1)
  - OSTEONECROSIS [None]
